FAERS Safety Report 14670165 (Version 2)
Quarter: 2018Q3

REPORT INFORMATION
  Report Type: Spontaneous
  Country: JP (occurrence: JP)
  Receive Date: 20180322
  Receipt Date: 20180801
  Transmission Date: 20181010
  Serious: Yes (Hospitalization)
  Sender: FDA-Public Use
  Company Number: JP-NOVOPROD-590974

PATIENT
  Age: 86 Year
  Sex: Male
  Weight: 50 kg

DRUGS (5)
  1. NOVORAPID [Suspect]
     Active Substance: INSULIN ASPART
     Dosage: UNK
     Route: 058
     Dates: start: 20171013
  2. NOVORAPID [Suspect]
     Active Substance: INSULIN ASPART
     Indication: DIABETES MELLITUS
     Dosage: UNK
     Route: 058
     Dates: start: 2011, end: 20171001
  3. INSULIN GLARGINE BS [Suspect]
     Active Substance: INSULIN GLARGINE
     Indication: DIABETES MELLITUS
     Dosage: UNK
     Route: 058
     Dates: start: 2011, end: 20171001
  4. INSULIN GLARGINE BS [Suspect]
     Active Substance: INSULIN GLARGINE
     Dosage: UNK
     Route: 058
     Dates: start: 20171013, end: 20171020
  5. NOVORAPID [Suspect]
     Active Substance: INSULIN ASPART
     Dosage: 22 IU, QD (18?4?2 )
     Route: 058
     Dates: start: 20171101

REACTIONS (6)
  - Hypoglycaemia [Recovered/Resolved]
  - Hypoglycaemia [Recovered/Resolved]
  - Anti-insulin antibody positive [Unknown]
  - Hypoglycaemia [Recovered/Resolved]
  - Blood glucose fluctuation [Recovered/Resolved]
  - Anti-insulin receptor antibody positive [Unknown]

NARRATIVE: CASE EVENT DATE: 2013
